FAERS Safety Report 4588343-2 (Version None)
Quarter: 2005Q1

REPORT INFORMATION
  Report Type: 
  Country: None (occurrence: None)
  Receive Date: 20050216
  Receipt Date: 20050216
  Transmission Date: 20050727
  Serious: Yes (Other)
  Sender: FDA-Public Use
  Company Number: None

PATIENT
  Sex: Male

DRUGS (2)
  1. VIOXX [Suspect]
     Indication: MYALGIA
     Dosage: 25 MG , DAILY TABLET
  2. VIOXX [Suspect]
     Indication: PAIN
     Dosage: 25 MG , DAILY TABLET

REACTIONS (1)
  - SUBARACHNOID HAEMORRHAGE [None]
